FAERS Safety Report 8360626-X (Version None)
Quarter: 2012Q2

REPORT INFORMATION
  Report Type: 
  Country: None (occurrence: None)
  Receive Date: 20120514
  Receipt Date: 20120514
  Transmission Date: 20120825
  Serious: Yes (Hospitalization)
  Sender: FDA-Public Use
  Company Number: None

PATIENT
  Sex: Female
  Weight: 92.8 kg

DRUGS (12)
  1. LORAZEPAM [Concomitant]
  2. BORTEZOMIB [Suspect]
     Indication: ACUTE MYELOID LEUKAEMIA
     Dosage: 0.7MG/M2 D1, D4, D8, D11 IV 12/31, 1/3, 1/7, 1/10
     Route: 042
  3. PROCHLORPERAZINE [Concomitant]
  4. ACYCLOVIR [Concomitant]
  5. VORICONAZOLE [Concomitant]
  6. OMEPRAZOLE [Concomitant]
  7. DULOXETIME HYDROCHLORIDE [Concomitant]
  8. MITOXANTRONE [Suspect]
     Indication: ACUTE MYELOID LEUKAEMIA
     Dosage: 6MG/M2 (MITO) QDX6 IV 12/31, 1/1-5
     Route: 042
  9. ETOPOSIDE [Suspect]
     Indication: ACUTE MYELOID LEUKAEMIA
     Dosage: 80MG/M2 (VP-16) QDX6 IV  12/31, 1/1-5
     Route: 042
  10. CYTARABINE [Suspect]
     Indication: ACUTE MYELOID LEUKAEMIA
     Dosage: 1000MG/M2 ARA-C QDX6 IV 12/31, 1/1-5
     Route: 042
  11. OLANZAPINE [Concomitant]
  12. AMLODIPINE BESYLATE AND BENAZEPRIL HCL [Concomitant]

REACTIONS (3)
  - VOMITING [None]
  - GASTROENTERITIS [None]
  - NAUSEA [None]
